FAERS Safety Report 23693117 (Version 1)
Quarter: 2024Q2

REPORT INFORMATION
  Report Type: Spontaneous
  Country: US (occurrence: US)
  Receive Date: 20240401
  Receipt Date: 20240401
  Transmission Date: 20240716
  Serious: No
  Sender: FDA-Public Use
  Company Number: US-Calliditas-2024CAL00498

PATIENT
  Age: 37 Year
  Sex: Male

DRUGS (1)
  1. TARPEYO [Suspect]
     Active Substance: BUDESONIDE
     Indication: IgA nephropathy
     Dosage: 16MG (4MG CAPSULES) ONCE DAILY (16MG/M3)
     Route: 048
     Dates: start: 20240203

REACTIONS (5)
  - Nausea [Unknown]
  - Lethargy [Unknown]
  - Energy increased [Unknown]
  - Heart rate decreased [Unknown]
  - Mood swings [Unknown]
